FAERS Safety Report 9154142 (Version 1)
Quarter: 2013Q1

REPORT INFORMATION
  Report Type: Spontaneous
  Country: US (occurrence: None)
  Receive Date: 20130306
  Receipt Date: 20130306
  Transmission Date: 20140127
  Serious: Yes (Other)
  Sender: FDA-Public Use
  Company Number: None

PATIENT
  Age: 53 Year
  Sex: Female
  Weight: 90.72 kg

DRUGS (1)
  1. METFORMIN [Suspect]
     Indication: BLOOD GLUCOSE INCREASED
     Dosage: 1  500MG TABLET 1 A DAY
     Dates: start: 20110101, end: 20130301

REACTIONS (6)
  - Myalgia [None]
  - Dizziness [None]
  - Dizziness [None]
  - Gait disturbance [None]
  - Feeling cold [None]
  - Impaired work ability [None]
